FAERS Safety Report 7128084-0 (Version None)
Quarter: 2010Q4

REPORT INFORMATION
  Report Type: 
  Country: None (occurrence: None)
  Receive Date: 20101130
  Receipt Date: 20101125
  Transmission Date: 20110411
  Serious: Yes (Life-Threatening, Hospitalization)
  Sender: FDA-Public Use
  Company Number: CA-PFIZER INC-2010039898

PATIENT
  Age: 55 Year
  Sex: Male
  Weight: 68.5 kg

DRUGS (8)
  1. BLINDED *NO SUBJECT DRUG [Suspect]
     Indication: BLADDER TRANSITIONAL CELL CARCINOMA
     Dosage: 50 MG, 1X/DAY, 4 WEEKS ON 2 WEEKS OFF
     Route: 048
     Dates: start: 20091009, end: 20100312
  2. PLACEBO [Suspect]
     Indication: BLADDER TRANSITIONAL CELL CARCINOMA
     Dosage: 50 MG, 1X/DAY, 4 WEEKS ON 2 WEEKS OFF
     Route: 048
     Dates: start: 20091009, end: 20100312
  3. SUNITINIB MALATE [Suspect]
     Indication: BLADDER TRANSITIONAL CELL CARCINOMA
     Dosage: 50 MG, 1X/DAY, 4 WEEKS ON 2 WEEKS OFF
     Route: 048
     Dates: start: 20091009, end: 20100312
  4. LIPIDIL [Concomitant]
     Indication: BLOOD CHOLESTEROL INCREASED
     Dosage: 160 MG, 1X/DAY
     Route: 048
     Dates: start: 20100302
  5. EZETROL [Concomitant]
     Indication: BLOOD CHOLESTEROL INCREASED
     Dosage: 10 MG, 1X/DAY
     Route: 048
     Dates: start: 20100302
  6. MAGNESIUM [Concomitant]
     Indication: BLOOD MAGNESIUM DECREASED
     Dosage: 500 MG, 2X/DAY
     Route: 048
     Dates: start: 20100301
  7. LOPERAMIDE [Concomitant]
     Indication: DIARRHOEA
     Dosage: 2 MG, AS NEEDED EVERY HOUR
     Route: 048
     Dates: start: 20100301
  8. SODIUM CHLORIDE [Concomitant]
     Indication: DEHYDRATION
     Dosage: UNK
     Route: 042
     Dates: start: 20100301, end: 20100301

REACTIONS (8)
  - ANAEMIA [None]
  - CHILLS [None]
  - DECREASED APPETITE [None]
  - DEHYDRATION [None]
  - DIARRHOEA [None]
  - FAILURE TO THRIVE [None]
  - PORTAL VEIN THROMBOSIS [None]
  - RENAL IMPAIRMENT [None]
